FAERS Safety Report 13624508 (Version 2)
Quarter: 2017Q2

REPORT INFORMATION
  Report Type: Spontaneous
  Country: FR (occurrence: FR)
  Receive Date: 20170607
  Receipt Date: 20170629
  Transmission Date: 20170830
  Serious: Yes (Death, Other)
  Sender: FDA-Public Use
  Company Number: FR-ELI_LILLY_AND_COMPANY-FR201706000269

PATIENT
  Age: 71 Year
  Sex: Male

DRUGS (6)
  1. CARBOPLATINE [Suspect]
     Active Substance: CARBOPLATIN
     Indication: BRONCHIAL CARCINOMA
     Dosage: UNK, SINGLE
     Route: 042
     Dates: start: 20170302, end: 20170323
  2. DEXAMETHASONE. [Concomitant]
     Active Substance: DEXAMETHASONE
     Dosage: 12 MG, UNKNOWN
     Route: 065
     Dates: start: 20170323
  3. EMEND [Concomitant]
     Active Substance: APREPITANT
     Dosage: 125 MG, UNKNOWN
     Route: 065
     Dates: start: 20170323
  4. VITAMIN B12 + FOLIC ACID [Concomitant]
     Indication: SUPPLEMENTATION THERAPY
     Dosage: UNK, UNKNOWN
     Route: 065
     Dates: start: 20170323
  5. ALIMTA [Suspect]
     Active Substance: PEMETREXED DISODIUM
     Indication: BRONCHIAL CARCINOMA
     Dosage: UNK, SINGLE
     Route: 042
     Dates: start: 20170302, end: 20170323
  6. ONDANSETRON [Concomitant]
     Active Substance: ONDANSETRON
     Dosage: 8 MG, UNKNOWN
     Route: 065
     Dates: start: 20170323

REACTIONS (9)
  - Malignant neoplasm progression [Unknown]
  - Pyrexia [Unknown]
  - Vomiting [Unknown]
  - Febrile bone marrow aplasia [Fatal]
  - Prostatitis [Unknown]
  - Off label use [Unknown]
  - Citrobacter infection [Unknown]
  - Nausea [Unknown]
  - Enterocolitis [Fatal]

NARRATIVE: CASE EVENT DATE: 201703
